FAERS Safety Report 8120908-3 (Version None)
Quarter: 2012Q1

REPORT INFORMATION
  Report Type: 
  Country: None (occurrence: None)
  Receive Date: 20120208
  Receipt Date: 20120130
  Transmission Date: 20120608
  Serious: Yes (Other)
  Sender: FDA-Public Use
  Company Number: US-ELI_LILLY_AND_COMPANY-US201103007194

PATIENT
  Sex: Female

DRUGS (9)
  1. CLONAZEPAM [Concomitant]
  2. ZYPREXA [Suspect]
     Indication: SCHIZOAFFECTIVE DISORDER
     Dosage: 20 MG, QD
     Dates: start: 20101209
  3. AMITRIPTYLINE HCL [Concomitant]
  4. ZYPREXA [Suspect]
     Dosage: 30 MG, QD
  5. ZYPREXA [Suspect]
     Dosage: 25 MG, QD
     Dates: start: 20110401, end: 20110401
  6. GABAPENTIN [Concomitant]
  7. ZYPREXA [Suspect]
     Dosage: 10 MG, QD
  8. ZYPREXA [Suspect]
     Dosage: 20 MG, QD
     Dates: start: 20110401
  9. AMBIEN [Concomitant]

REACTIONS (4)
  - HEAD INJURY [None]
  - OVERDOSE [None]
  - ROAD TRAFFIC ACCIDENT [None]
  - PAIN [None]
